FAERS Safety Report 6397175-4 (Version None)
Quarter: 2009Q4

REPORT INFORMATION
  Report Type: 
  Country: None (occurrence: None)
  Receive Date: 20091012
  Receipt Date: 20091005
  Transmission Date: 20100525
  Serious: Yes (Death, Hospitalization)
  Sender: FDA-Public Use
  Company Number: US-GILEAD-2009-0023418

PATIENT
  Sex: Female

DRUGS (9)
  1. LETAIRIS [Suspect]
     Indication: PULMONARY ARTERIAL HYPERTENSION
     Route: 048
     Dates: start: 20081107
  2. COUMADIN [Concomitant]
  3. DIGOXIN [Concomitant]
  4. METOPROLOL TARTRATE [Concomitant]
  5. SIMVASTATIN [Concomitant]
  6. IMURAN [Concomitant]
  7. PREDNISONE [Concomitant]
  8. EVOXAC [Concomitant]
  9. NEXIUM [Concomitant]

REACTIONS (2)
  - DEATH [None]
  - PNEUMONIA [None]
